FAERS Safety Report 8227667-4 (Version None)
Quarter: 2012Q1

REPORT INFORMATION
  Report Type: 
  Country: None (occurrence: None)
  Receive Date: 20120322
  Receipt Date: 20120316
  Transmission Date: 20120608
  Serious: Yes (Other)
  Sender: FDA-Public Use
  Company Number: US-PFIZER INC-2012070074

PATIENT
  Sex: Female
  Weight: 73.469 kg

DRUGS (6)
  1. REQUIP [Concomitant]
     Indication: LIMB DISCOMFORT
     Dosage: 5 MG, 2X/DAY
  2. WARFARIN SODIUM [Concomitant]
     Indication: THROMBOSIS
     Dosage: 2.5 MG OR 5MG DAILY
  3. ZOCOR [Concomitant]
     Dosage: 40 MG, DAILY
  4. PRISTIQ [Suspect]
     Indication: POST-TRAUMATIC STRESS DISORDER
  5. PRISTIQ [Suspect]
     Indication: DEPRESSION
     Dosage: 50 MG, DAILY
     Route: 048
     Dates: end: 20120202
  6. TOPROL-XL [Concomitant]
     Indication: CARDIAC DISORDER
     Dosage: 50 MG, 2X/DAY

REACTIONS (9)
  - IMPAIRED WORK ABILITY [None]
  - ANXIETY [None]
  - VOMITING [None]
  - CARDIAC FLUTTER [None]
  - CRYING [None]
  - TREMOR [None]
  - INSOMNIA [None]
  - IMPAIRED DRIVING ABILITY [None]
  - HYPERTENSION [None]
